FAERS Safety Report 10078594 (Version 1)
Quarter: 2014Q2

REPORT INFORMATION
  Report Type: Spontaneous
  Country: FR (occurrence: FR)
  Receive Date: 20140415
  Receipt Date: 20140415
  Transmission Date: 20141212
  Serious: Yes (Hospitalization, Other)
  Sender: FDA-Public Use
  Company Number: FR-ASTRAZENECA-2014SE24952

PATIENT
  Age: 24552 Day
  Sex: Male

DRUGS (13)
  1. INEXIUM [Suspect]
     Route: 048
     Dates: start: 20110113, end: 20140216
  2. TRIATEC [Interacting]
     Route: 048
  3. TRIATEC [Interacting]
     Route: 048
  4. ZYPREXA [Interacting]
     Route: 048
     Dates: start: 2010
  5. DEPAKOTE [Interacting]
     Route: 048
     Dates: start: 2010
  6. INSPRA [Interacting]
     Route: 048
     Dates: start: 20110113, end: 20140216
  7. TAHOR [Concomitant]
     Route: 048
     Dates: start: 201008
  8. KREDEX [Concomitant]
     Indication: HYPERTENSION
     Route: 048
     Dates: start: 201008, end: 201403
  9. PLAVIX [Concomitant]
     Route: 048
     Dates: start: 201008
  10. METFORMINE [Concomitant]
     Route: 048
     Dates: start: 201008
  11. TARDYFERON [Concomitant]
  12. UVEDOSE [Concomitant]
  13. KARDEGIC [Concomitant]
     Dates: start: 20110113

REACTIONS (3)
  - Drug interaction [Unknown]
  - Hyponatraemia [Recovered/Resolved]
  - Platelet count decreased [Recovered/Resolved]
